FAERS Safety Report 18090042 (Version 5)
Quarter: 2020Q3

REPORT INFORMATION
  Report Type: Report from Study
  Country: None (occurrence: US)
  Receive Date: 20200730
  Receipt Date: 20200821
  Transmission Date: 20201103
  Serious: Yes (Hospitalization, Other)
  Sender: FDA-Public Use
  Company Number: US-ABBVIE-20K-163-3422153-00

PATIENT
  Sex: Female
  Weight: 77.18 kg

DRUGS (5)
  1. PREDNISONE. [Concomitant]
     Active Substance: PREDNISONE
     Indication: PRODUCT USED FOR UNKNOWN INDICATION
  2. CEFUROXIME AXETIL. [Concomitant]
     Active Substance: CEFUROXIME AXETIL
     Indication: PRODUCT USED FOR UNKNOWN INDICATION
  3. RINVOQ [Suspect]
     Active Substance: UPADACITINIB
     Indication: RHEUMATOID ARTHRITIS
     Route: 048
     Dates: start: 201910, end: 20200802
  4. ARAVA [Concomitant]
     Active Substance: LEFLUNOMIDE
     Indication: PRODUCT USED FOR UNKNOWN INDICATION
  5. RINVOQ [Suspect]
     Active Substance: UPADACITINIB
     Route: 048
     Dates: start: 20200815

REACTIONS (10)
  - Chronic sinusitis [Recovered/Resolved]
  - Infection susceptibility increased [Unknown]
  - Stress cardiomyopathy [Recovered/Resolved]
  - Cerebrovascular accident [Recovered/Resolved]
  - Sinusitis [Recovered/Resolved]
  - Chest pain [Recovered/Resolved]
  - Myocardial necrosis marker increased [Recovered/Resolved]
  - Facial paralysis [Recovered/Resolved]
  - Fatigue [Recovered/Resolved]
  - Transient ischaemic attack [Recovered/Resolved]

NARRATIVE: CASE EVENT DATE: 2020
